FAERS Safety Report 8289540-5 (Version None)
Quarter: 2012Q2

REPORT INFORMATION
  Report Type: 
  Country: None (occurrence: None)
  Receive Date: 20120417
  Receipt Date: 20120412
  Transmission Date: 20120825
  Serious: Yes (Hospitalization)
  Sender: FDA-Public Use
  Company Number: BR-ABBOTT-12P-020-0925315-00

PATIENT
  Sex: Male

DRUGS (6)
  1. AKINETON [Suspect]
     Indication: TREMOR
  2. ASPIRIN [Concomitant]
     Indication: PYREXIA
  3. AKINETON [Suspect]
     Indication: BONE DISORDER
     Route: 048
     Dates: start: 19950101, end: 20120101
  4. ASPIRIN [Concomitant]
     Indication: PAIN
     Route: 048
  5. PROLOPA [Suspect]
     Indication: GAIT DISTURBANCE
     Route: 048
     Dates: start: 19950101
  6. PROLOPA [Suspect]
     Indication: MOVEMENT DISORDER

REACTIONS (8)
  - DYSENTERY [None]
  - VOMITING [None]
  - HAND DEFORMITY [None]
  - MALAISE [None]
  - FEELING ABNORMAL [None]
  - OEDEMA PERIPHERAL [None]
  - WEIGHT DECREASED [None]
  - OPEN WOUND [None]
